FAERS Safety Report 18480906 (Version 6)
Quarter: 2022Q3

REPORT INFORMATION
  Report Type: Report from Study
  Country: US (occurrence: US)
  Receive Date: 20201109
  Receipt Date: 20220714
  Transmission Date: 20221027
  Serious: Yes (Other)
  Sender: FDA-Public Use
  Company Number: NVSC2020US292363

PATIENT
  Sex: Female

DRUGS (2)
  1. KISQALI [Suspect]
     Active Substance: RIBOCICLIB
     Indication: Breast cancer
     Dosage: 600 MG, QD
     Route: 048
     Dates: start: 20200924
  2. AFINITOR [Suspect]
     Active Substance: EVEROLIMUS
     Indication: Product used for unknown indication
     Dosage: UNK
     Route: 065

REACTIONS (14)
  - Metastases to lung [Unknown]
  - Metastases to liver [Unknown]
  - Neutropenia [Recovering/Resolving]
  - Full blood count abnormal [Unknown]
  - Illness [Unknown]
  - Hepatic lesion [Unknown]
  - White blood cell count decreased [Unknown]
  - Fatigue [Unknown]
  - Rash [Recovering/Resolving]
  - Pruritus [Unknown]
  - Asthenia [Unknown]
  - Malaise [Unknown]
  - Stomatitis [Unknown]
  - Dyspnoea [Unknown]
